FAERS Safety Report 5791662-5 (Version None)
Quarter: 2008Q2

REPORT INFORMATION
  Report Type: 
  Country: None (occurrence: None)
  Receive Date: 20080626
  Receipt Date: 20080307
  Transmission Date: 20081010
  Serious: No
  Sender: FDA-Public Use
  Company Number: A0714008A

PATIENT

DRUGS (2)
  1. ALLI [Suspect]
     Indication: DRUG USE FOR UNKNOWN INDICATION
  2. SULFAMETHOXAZOLE [Concomitant]

REACTIONS (3)
  - CONSTIPATION [None]
  - DISCOMFORT [None]
  - DRUG INTERACTION [None]
